FAERS Safety Report 10787498 (Version 1)
Quarter: 2015Q1

REPORT INFORMATION
  Report Type: Spontaneous
  Country: US (occurrence: US)
  Receive Date: 20150212
  Receipt Date: 20150212
  Transmission Date: 20150721
  Serious: Yes (Hospitalization)
  Sender: FDA-Public Use
  Company Number: US-SUN PHARMACEUTICAL INDUSTRIES LTD-2015SUN00375

PATIENT

DRUGS (1)
  1. PROPAFENONE HYDROCHLORIDE TABLETS, 150 MG [Suspect]
     Active Substance: PROPAFENONE HYDROCHLORIDE
     Indication: ATRIAL FIBRILLATION
     Dosage: 900 MG/DAY, UNK
     Route: 065

REACTIONS (4)
  - Abdominal discomfort [Unknown]
  - Anaemia [Recovered/Resolved]
  - Gastrointestinal haemorrhage [Unknown]
  - Liver function test abnormal [Recovered/Resolved]
